FAERS Safety Report 5874109-X (Version None)
Quarter: 2008Q3

REPORT INFORMATION
  Report Type: 
  Country: None (occurrence: None)
  Receive Date: 20080829
  Receipt Date: 20080508
  Transmission Date: 20090109
  Serious: Yes (Other)
  Sender: FDA-Public Use
  Company Number: 2008S1011059

PATIENT
  Age: 25 Year
  Sex: Female

DRUGS (4)
  1. CLARITHROMYCIN [Suspect]
     Indication: BACTEROIDES INFECTION
     Dosage: 250 MG; ORAL
     Route: 048
     Dates: end: 20080416
  2. IPRATROPIUM (IPRATROPIUM) (CON.) [Concomitant]
  3. PREDNISOLONE (PREDNISOLONE) (CON.) [Concomitant]
  4. SALBUTAMOL (SALBUTAMOL) (CON.) [Concomitant]

REACTIONS (2)
  - LETHARGY [None]
  - PALPITATIONS [None]
